FAERS Safety Report 9955432 (Version 1)
Quarter: 2014Q1

REPORT INFORMATION
  Report Type: Report from Study
  Country: US (occurrence: US)
  Receive Date: 20140304
  Receipt Date: 20140304
  Transmission Date: 20141002
  Serious: No
  Sender: FDA-Public Use
  Company Number: US-ABBVIE-13P-163-1086228-00

PATIENT
  Age: 65 Year
  Sex: Male
  Weight: 66.28 kg

DRUGS (7)
  1. HUMIRA [Suspect]
     Indication: COLITIS ULCERATIVE
     Dates: start: 201302
  2. ASACOL [Concomitant]
     Indication: COLITIS ULCERATIVE
  3. FOLIC ACID [Concomitant]
     Indication: VITAMIN SUPPLEMENTATION
  4. AVODART [Concomitant]
     Indication: BENIGN PROSTATIC HYPERPLASIA
  5. TAMSULOSIM [Concomitant]
     Indication: BENIGN PROSTATIC HYPERPLASIA
  6. PREVASTATIN [Concomitant]
     Indication: HYPERLIPIDAEMIA
  7. CENTRUM COMPLETE [Concomitant]
     Indication: VITAMIN SUPPLEMENTATION

REACTIONS (2)
  - Nasal congestion [Recovered/Resolved]
  - Sinusitis [Recovered/Resolved]
